FAERS Safety Report 8046481-6 (Version None)
Quarter: 2012Q1

REPORT INFORMATION
  Report Type: 
  Country: None (occurrence: None)
  Receive Date: 20120113
  Receipt Date: 20120107
  Transmission Date: 20120608
  Serious: Yes (Hospitalization)
  Sender: FDA-Public Use
  Company Number: BE-ABBOTT-12P-013-0890142-00

PATIENT
  Sex: Male

DRUGS (6)
  1. ALENDRONATE SODIUM [Concomitant]
     Indication: PRODUCT USED FOR UNKNOWN INDICATION
     Dosage: 70MG/WEEK
  2. RANITIDINE [Concomitant]
     Indication: PRODUCT USED FOR UNKNOWN INDICATION
     Dosage: 300MG DAILY
  3. MEDROL [Concomitant]
     Dosage: 8MG DAILY
     Dates: end: 20120106
  4. STEOVIT D3 [Concomitant]
     Indication: PRODUCT USED FOR UNKNOWN INDICATION
     Dosage: 1000/880; 1 IN 1 DAY
  5. HUMIRA [Suspect]
     Indication: RHEUMATOID ARTHRITIS
     Dates: start: 20111007
  6. MEDROL [Concomitant]
     Indication: ARTHRITIS
     Dosage: 4MG DAILY
     Dates: start: 20120106

REACTIONS (1)
  - DIVERTICULUM INTESTINAL HAEMORRHAGIC [None]
